FAERS Safety Report 7810792-7 (Version None)
Quarter: 2011Q4

REPORT INFORMATION
  Report Type: 
  Country: None (occurrence: None)
  Receive Date: 20111011
  Receipt Date: 20110927
  Transmission Date: 20120403
  Serious: Yes (Hospitalization)
  Sender: FDA-Public Use
  Company Number: 1000024478

PATIENT
  Age: 45 Year
  Sex: Male

DRUGS (4)
  1. LEXOMIL (BROMAZEPAM) (TABLETS) [Suspect]
     Dosage: 2 DF (0.5 DOSAGE FORMS, 4 IN 1 D), ONE INTAKE OF 30 DF, ORAL
     Route: 048
     Dates: start: 20110911, end: 20110911
  2. ESCITALOPRAM OXALATE [Suspect]
     Dosage: 20 MG (20 MG, 1 IN 1 D) ORAL
     Route: 048
     Dates: start: 20110911, end: 20110911
  3. SUBUTEX (BUPRFENORPHINE HYDROCHLORIDE) [Concomitant]
  4. TERCIAN (CYAMEMAZINE) (TABLETS) [Suspect]
     Dosage: 100 MG (25 MG, 4 IN 1 D), ONE INTAKE OF 105 DF,  ORAL
     Route: 048
     Dates: start: 20110911, end: 20110911

REACTIONS (7)
  - SOMNOLENCE [None]
  - CYTOLYTIC HEPATITIS [None]
  - PNEUMONIA ASPIRATION [None]
  - PROTHROMBIN TIME PROLONGED [None]
  - CONFUSIONAL STATE [None]
  - INCORRECT DOSE ADMINISTERED [None]
  - PSYCHOMOTOR RETARDATION [None]
